FAERS Safety Report 17828025 (Version 1)
Quarter: 2020Q2

REPORT INFORMATION
  Report Type: Spontaneous
  Country: BR (occurrence: BR)
  Receive Date: 20200527
  Receipt Date: 20200527
  Transmission Date: 20200714
  Serious: Yes (Life-Threatening, Other)
  Sender: FDA-Public Use
  Company Number: NVSC2020BR143279

PATIENT
  Age: 29 Year
  Sex: Female

DRUGS (1)
  1. METHYLPREDNISOLONE. [Suspect]
     Active Substance: METHYLPREDNISOLONE
     Indication: SYSTEMIC LUPUS ERYTHEMATOSUS
     Dosage: UNK(FOR 3 DAYS)
     Route: 065

REACTIONS (4)
  - Coma [Unknown]
  - Encephalitis [Unknown]
  - Condition aggravated [Unknown]
  - Lupus nephritis [Unknown]
